FAERS Safety Report 22211506 (Version 1)
Quarter: 2023Q2

REPORT INFORMATION
  Report Type: Spontaneous
  Country: US (occurrence: None)
  Receive Date: 20230413
  Receipt Date: 20230413
  Transmission Date: 20230722
  Serious: Yes (Hospitalization)
  Sender: FDA-Public Use
  Company Number: None

PATIENT
  Age: 66 Year
  Sex: Female

DRUGS (3)
  1. REBIF [Suspect]
     Active Substance: INTERFERON BETA-1A
     Indication: Multiple sclerosis
     Dosage: 44 MCG/0.5ML  SUBCUTANEOUS??INJECT 0.5 ML UNDER THE SKIN (SUBCUTANEOUS INJECTION) THREE TIMES PER W
     Route: 058
     Dates: start: 20160823
  2. METFORMIN [Concomitant]
     Active Substance: METFORMIN HYDROCHLORIDE
  3. ATORVASTATIN TAB 20MG [Concomitant]

REACTIONS (2)
  - Therapy interrupted [None]
  - Uterine dilation and curettage [None]

NARRATIVE: CASE EVENT DATE: 20230410
